FAERS Safety Report 9502712 (Version 1)
Quarter: 2013Q3

REPORT INFORMATION
  Report Type: Report from Study
  Country: CA (occurrence: CA)
  Receive Date: 20130906
  Receipt Date: 20130906
  Transmission Date: 20140515
  Serious: Yes (Other)
  Sender: FDA-Public Use
  Company Number: CA-JNJFOC-20130900131

PATIENT
  Age: 57 Year
  Sex: Female
  Weight: 80 kg

DRUGS (16)
  1. REMICADE [Suspect]
     Indication: BEHCET^S SYNDROME
     Route: 042
     Dates: start: 20111209, end: 20130829
  2. ATIVAN [Concomitant]
     Route: 065
  3. AMITRIPTYLINE [Concomitant]
     Route: 065
  4. STATEX [Concomitant]
     Route: 065
  5. MAXALT [Concomitant]
     Route: 065
  6. ZOPICLONE [Concomitant]
     Route: 065
  7. ADALAT [Concomitant]
     Route: 065
  8. CYCLOBENZAPRINE [Concomitant]
     Route: 065
  9. LYRICA [Concomitant]
     Route: 065
  10. COLCHICINE [Concomitant]
     Route: 065
  11. WELLBUTRIN [Concomitant]
     Route: 065
  12. SPIRIVA [Concomitant]
     Route: 065
  13. NEXIUM [Concomitant]
     Route: 065
  14. SYMBICORT [Concomitant]
     Route: 065
  15. ALVESCO [Concomitant]
     Route: 065
  16. APO HYDRO [Concomitant]
     Route: 065

REACTIONS (2)
  - Breast cyst [Not Recovered/Not Resolved]
  - Off label use [Unknown]
